FAERS Safety Report 8467898-1 (Version None)
Quarter: 2012Q2

REPORT INFORMATION
  Report Type: 
  Country: None (occurrence: None)
  Receive Date: 20120626
  Receipt Date: 20120611
  Transmission Date: 20120825
  Serious: Yes (Other)
  Sender: FDA-Public Use
  Company Number: GB-WATSON-2012-10374

PATIENT
  Age: 67 Year
  Sex: Male
  Weight: 72 kg

DRUGS (2)
  1. IBUPROFEN [Suspect]
     Indication: ABSCESS LIMB
     Dosage: 200 MG, UNKNOWN INTERVAL
     Route: 048
     Dates: start: 20120427, end: 20120503
  2. FLOXACILLIN SODIUM [Suspect]
     Indication: ABSCESS LIMB
     Dosage: 500 MG, UNKNOWN INTERVAL
     Route: 048
     Dates: start: 20120427, end: 20120512

REACTIONS (3)
  - RENAL FAILURE ACUTE [None]
  - BLOOD CREATININE INCREASED [None]
  - EOSINOPHIL COUNT ABNORMAL [None]
